FAERS Safety Report 8438704-6 (Version None)
Quarter: 2012Q2

REPORT INFORMATION
  Report Type: 
  Country: None (occurrence: None)
  Receive Date: 20120611
  Receipt Date: 20120611
  Transmission Date: 20120825
  Serious: Yes (Hospitalization)
  Sender: FDA-Public Use
  Company Number: None

PATIENT
  Sex: Male
  Weight: 64.5 kg

DRUGS (1)
  1. CISPLATIN [Suspect]
     Dosage: 360 MG

REACTIONS (4)
  - NECK PAIN [None]
  - DEHYDRATION [None]
  - ORAL CANDIDIASIS [None]
  - DYSPHAGIA [None]
